FAERS Safety Report 25742560 (Version 1)
Quarter: 2025Q3

REPORT INFORMATION
  Report Type: Other
  Country: US (occurrence: US)
  Receive Date: 20250829
  Receipt Date: 20250829
  Transmission Date: 20251021
  Serious: No
  Sender: MADRIGAL PHARMACEUTICALS
  Company Number: US-MADRIGAL PHARMACEUTICALS, INC-2025USREZ09874

PATIENT

DRUGS (15)
  1. REZDIFFRA [Suspect]
     Active Substance: RESMETIROM
     Indication: Metabolic dysfunction-associated steatohepatitis
     Dosage: 80 MILLIGRAM, QD
     Route: 048
     Dates: start: 2025
  2. REZDIFFRA [Suspect]
     Active Substance: RESMETIROM
     Indication: Hepatic steatosis
  3. REZDIFFRA [Suspect]
     Active Substance: RESMETIROM
     Indication: Hepatic fibrosis
  4. DEXAMETHASONE [Suspect]
     Active Substance: DEXAMETHASONE
     Indication: Product used for unknown indication
     Route: 065
  5. ESTRING [Concomitant]
     Active Substance: ESTRADIOL
  6. FOLIC ACID [Concomitant]
     Active Substance: FOLIC ACID
  7. KEVZARA [Concomitant]
     Active Substance: SARILUMAB
  8. LEXAPRO [Concomitant]
     Active Substance: ESCITALOPRAM OXALATE
  9. MAGNESIUM [Concomitant]
     Active Substance: MAGNESIUM
  10. METFORMIN [Concomitant]
     Active Substance: METFORMIN HYDROCHLORIDE
  11. PROBIOTICS NOS [Concomitant]
     Active Substance: PROBIOTICS NOS
  12. ROSUVASTATIN [Concomitant]
     Active Substance: ROSUVASTATIN
  13. VITAMIN C [Concomitant]
     Active Substance: ASCORBIC ACID
  14. VITAMIN D [Concomitant]
     Active Substance: VITAMIN D NOS
  15. ZINC [Concomitant]
     Active Substance: ZINC

REACTIONS (2)
  - Yellow skin [Unknown]
  - Faeces pale [Unknown]

NARRATIVE: CASE EVENT DATE: 20250101
